FAERS Safety Report 7422634-2 (Version None)
Quarter: 2011Q2

REPORT INFORMATION
  Report Type: 
  Country: None (occurrence: None)
  Receive Date: 20110411
  Receipt Date: 20110328
  Transmission Date: 20111010
  Serious: Yes (Hospitalization)
  Sender: FDA-Public Use
  Company Number: 2011001511

PATIENT
  Age: 77 Year
  Sex: Male

DRUGS (2)
  1. LEVOPRAID (SULPIRIDE) [Concomitant]
  2. TARCEVA [Suspect]
     Indication: LUNG CANCER METASTATIC
     Dosage: ORAL
     Route: 048
     Dates: start: 20110227, end: 20110305

REACTIONS (1)
  - CHRONIC MYELOID LEUKAEMIA [None]
